FAERS Safety Report 7493256-2 (Version None)
Quarter: 2011Q2

REPORT INFORMATION
  Report Type: 
  Country: None (occurrence: None)
  Receive Date: 20110520
  Receipt Date: 20101230
  Transmission Date: 20111010
  Serious: Yes (Hospitalization)
  Sender: FDA-Public Use
  Company Number: US-BAYER-201010709NA

PATIENT
  Age: 25 Year
  Sex: Female
  Weight: 58.957 kg

DRUGS (6)
  1. YAZ [Suspect]
     Indication: PRODUCT USED FOR UNKNOWN INDICATION
     Dosage: 1 DF (DAILY DOSE), QD, ORAL
     Route: 048
     Dates: start: 20030601, end: 20031201
  2. NSAID'S [Concomitant]
  3. YASMIN [Suspect]
     Dosage: UNK
     Dates: start: 20030801, end: 20040131
  4. YASMIN [Suspect]
     Dosage: UNK
     Dates: start: 20030601, end: 20040101
  5. YASMIN [Suspect]
     Indication: CONTRACEPTION
     Dosage: 1 DF (DAILY DOSE), QD, ORAL
     Route: 048
     Dates: start: 20030601, end: 20031201
  6. ZOLOFT [Concomitant]
     Indication: DEPRESSION
     Dosage: UNK
     Dates: start: 20031101, end: 20060301

REACTIONS (6)
  - HYPOAESTHESIA [None]
  - PULMONARY EMBOLISM [None]
  - CHEST PAIN [None]
  - DYSPNOEA [None]
  - PAIN [None]
  - SWELLING [None]
